FAERS Safety Report 18131455 (Version 2)
Quarter: 2022Q4

REPORT INFORMATION
  Report Type: Spontaneous
  Country: ES (occurrence: ES)
  Receive Date: 20200810
  Receipt Date: 20221028
  Transmission Date: 20230113
  Serious: Yes (Other)
  Sender: FDA-Public Use
  Company Number: ES-NOVARTISPH-NVSC2020ES221496

PATIENT
  Sex: Female

DRUGS (1)
  1. LEVETIRACETAM [Suspect]
     Active Substance: LEVETIRACETAM
     Indication: Partial seizures
     Dosage: UNKNOWN DOSE
     Route: 065

REACTIONS (3)
  - Premature separation of placenta [Unknown]
  - Maternal exposure during pregnancy [Unknown]
  - Off label use [Unknown]
